FAERS Safety Report 26117054 (Version 1)
Quarter: 2025Q4

REPORT INFORMATION
  Report Type: Spontaneous
  Country: US (occurrence: US)
  Receive Date: 20251203
  Receipt Date: 20251203
  Transmission Date: 20260118
  Serious: No
  Sender: DR REDDYS
  Company Number: US-DRL-USA-USA/2025/11/017614

PATIENT

DRUGS (3)
  1. METOPROLOL SUCCINATE [Suspect]
     Active Substance: METOPROLOL SUCCINATE
     Indication: Product used for unknown indication
  2. PRILOSEC [Suspect]
     Active Substance: OMEPRAZOLE MAGNESIUM
     Indication: Product used for unknown indication
  3. TRYPTYR [Suspect]
     Active Substance: ACOLTREMON
     Indication: Product used for unknown indication

REACTIONS (3)
  - Eye pain [Unknown]
  - Vision blurred [Unknown]
  - Ocular discomfort [Unknown]
